FAERS Safety Report 5055190-7 (Version None)
Quarter: 2006Q3

REPORT INFORMATION
  Report Type: 
  Country: None (occurrence: None)
  Receive Date: 20060714
  Receipt Date: 20060706
  Transmission Date: 20061208
  Serious: Yes (Hospitalization, Other)
  Sender: FDA-Public Use
  Company Number: FRWYE030506JUL06

PATIENT
  Age: 24 Year
  Sex: Female

DRUGS (7)
  1. ADVIL [Suspect]
     Indication: PHARYNGITIS
     Dosage: ORAL
     Route: 048
     Dates: start: 20060607, end: 20060609
  2. ADVIL [Suspect]
     Indication: RHINITIS
     Dosage: ORAL
     Route: 048
     Dates: start: 20060607, end: 20060609
  3. AUGMENTIN '125' [Suspect]
     Indication: PHARYNGITIS
     Dosage: 9 G 1X PER 1 DAY
     Route: 048
     Dates: start: 20060607, end: 20060609
  4. AUGMENTIN '125' [Suspect]
     Indication: RHINITIS
     Dosage: 9 G 1X PER 1 DAY
     Route: 048
     Dates: start: 20060607, end: 20060609
  5. ACETAMINOPHEN [Suspect]
     Indication: PHARYNGITIS
     Dosage: 3 G 1X PER 1 DAY
     Dates: start: 20060607, end: 20060609
  6. ACETAMINOPHEN [Suspect]
     Indication: RHINITIS
     Dosage: 3 G 1X PER 1 DAY
     Dates: start: 20060607, end: 20060609
  7. GESTODENE AND ETHINYL ESTRADIOL [Concomitant]

REACTIONS (5)
  - HEPATITIS [None]
  - LEUKOPENIA [None]
  - PLATELET COUNT DECREASED [None]
  - PYREXIA [None]
  - VOMITING [None]
